FAERS Safety Report 24300352 (Version 3)
Quarter: 2024Q4

REPORT INFORMATION
  Report Type: Report from Study
  Country: US (occurrence: US)
  Receive Date: 20240909
  Receipt Date: 20241113
  Transmission Date: 20250115
  Serious: Yes (Hospitalization)
  Sender: TAKEDA
  Company Number: US-TAKEDA-2024TUS088668

PATIENT
  Sex: Female

DRUGS (1)
  1. FRUQUINTINIB [Suspect]
     Active Substance: FRUQUINTINIB
     Indication: Colon cancer
     Dosage: 5 MILLIGRAM

REACTIONS (9)
  - Hospitalisation [Unknown]
  - Cough [Unknown]
  - Nasopharyngitis [Unknown]
  - Product dose omission issue [Unknown]
  - Rash pustular [Unknown]
  - Breast pain [Unknown]
  - Arthralgia [Unknown]
  - Pain in extremity [Unknown]
  - Gait disturbance [Unknown]
